FAERS Safety Report 25368212 (Version 1)
Quarter: 2025Q2

REPORT INFORMATION
  Report Type: Spontaneous
  Country: US (occurrence: None)
  Receive Date: 20250527
  Receipt Date: 20250527
  Transmission Date: 20250717
  Serious: No
  Sender: FDA-CTU
  Company Number: None

PATIENT
  Age: 63 Year
  Sex: Female
  Weight: 80.74 kg

DRUGS (1)
  1. FORTEO [Suspect]
     Active Substance: TERIPARATIDE
     Indication: Senile osteoporosis
     Dosage: OTHER STRENGTH : 560 MCG/2.24ML;?FREQUENCY : DAILY;?
     Route: 058
     Dates: start: 202404

REACTIONS (2)
  - Wrist surgery [None]
  - Joint arthroplasty [None]
